FAERS Safety Report 15007380 (Version 1)
Quarter: 2018Q2

REPORT INFORMATION
  Report Type: Spontaneous
  Country: US (occurrence: US)
  Receive Date: 20180613
  Receipt Date: 20180613
  Transmission Date: 20180711
  Serious: Yes (Other)
  Sender: FDA-Public Use
  Company Number: US-BRISTOL-MYERS SQUIBB COMPANY-BMS-2018-052673

PATIENT
  Sex: Male

DRUGS (1)
  1. ELIQUIS [Suspect]
     Active Substance: APIXABAN
     Indication: CEREBROVASCULAR ACCIDENT PROPHYLAXIS
     Dosage: 5 MG, BID
     Route: 048
     Dates: start: 20180119

REACTIONS (5)
  - Accident [Unknown]
  - Tendon rupture [Unknown]
  - Memory impairment [Unknown]
  - Atrial fibrillation [Unknown]
  - Foot fracture [Unknown]

NARRATIVE: CASE EVENT DATE: 201805
